FAERS Safety Report 8392785-7 (Version None)
Quarter: 2012Q1

REPORT INFORMATION
  Report Type: 
  Country: None (occurrence: None)
  Receive Date: 20120323
  Receipt Date: 20111220
  Transmission Date: 20120608
  Serious: Yes (Other)
  Sender: FDA-Public Use
  Company Number: 163-21880-11031465

PATIENT
  Age: 77 Year
  Sex: Female

DRUGS (5)
  1. REVLIMID [Suspect]
     Indication: MULTIPLE MYELOMA
     Dosage: 15 MG, DAYS 1-21, PO, 10 MG 3 WKS ON, 1 WK OFF, PO, 10 MG 2 WKS ON 2 WKS OFF, PO, 5 MG, 2WKS ON, 2 W
     Route: 048
     Dates: start: 20110113
  2. REVLIMID [Suspect]
     Indication: MULTIPLE MYELOMA
     Dosage: 15 MG, DAYS 1-21, PO, 10 MG 3 WKS ON, 1 WK OFF, PO, 10 MG 2 WKS ON 2 WKS OFF, PO, 5 MG, 2WKS ON, 2 W
     Route: 048
     Dates: start: 20101104, end: 20101202
  3. REVLIMID [Suspect]
     Indication: MULTIPLE MYELOMA
     Dosage: 15 MG, DAYS 1-21, PO, 10 MG 3 WKS ON, 1 WK OFF, PO, 10 MG 2 WKS ON 2 WKS OFF, PO, 5 MG, 2WKS ON, 2 W
     Route: 048
     Dates: start: 20110310, end: 20110519
  4. REVLIMID [Suspect]
     Indication: MULTIPLE MYELOMA
     Dosage: 15 MG, DAYS 1-21, PO, 10 MG 3 WKS ON, 1 WK OFF, PO, 10 MG 2 WKS ON 2 WKS OFF, PO, 5 MG, 2WKS ON, 2 W
     Route: 048
     Dates: start: 20110210
  5. DEXAMETHASONE [Concomitant]

REACTIONS (8)
  - PANCYTOPENIA [None]
  - MULTIPLE MYELOMA [None]
  - MUSCLE SPASMS [None]
  - NEUROPATHY PERIPHERAL [None]
  - FATIGUE [None]
  - NEUTROPENIA [None]
  - WHITE BLOOD CELL COUNT DECREASED [None]
  - HEADACHE [None]
